FAERS Safety Report 9200602 (Version 1)
Quarter: 2013Q1

REPORT INFORMATION
  Report Type: Report from Study
  Country: US (occurrence: US)
  Receive Date: 20130329
  Receipt Date: 20130329
  Transmission Date: 20140127
  Serious: Yes (Other)
  Sender: FDA-Public Use
  Company Number: US-JNJCH-2008006863

PATIENT
  Age: 57 Year
  Sex: Female
  Weight: 86.2 kg

DRUGS (2)
  1. IBUPROFEN [Suspect]
     Indication: FIBROMYALGIA
     Dosage: 800 MG, 2X/DAY
     Route: 048
  2. METHADONE [Concomitant]
     Dosage: UNSPECIFIED
     Route: 065

REACTIONS (2)
  - Pneumonia [Unknown]
  - Fibromyalgia [Not Recovered/Not Resolved]
